FAERS Safety Report 4591832-8 (Version None)
Quarter: 2005Q1

REPORT INFORMATION
  Report Type: 
  Country: None (occurrence: None)
  Receive Date: 20050222
  Receipt Date: 20050211
  Transmission Date: 20050727
  Serious: Yes (Life-Threatening, Hospitalization)
  Sender: FDA-Public Use
  Company Number: 800273

PATIENT
  Age: 59 Year
  Sex: Female
  Weight: 89.8122 kg

DRUGS (19)
  1. EXTRANEAL [Suspect]
     Indication: PERITONEAL DIALYSIS
     Dosage: 2500 CC; QHS; INTRAPERITONEAL
     Route: 033
     Dates: start: 20031204, end: 20050207
  2. ATENOLOL [Concomitant]
  3. ROCALTROL [Concomitant]
  4. FUROSEMIDE [Concomitant]
  5. COUMADIN [Concomitant]
  6. PRINIVIL [Concomitant]
  7. ZOCOR [Concomitant]
  8. EPOGEN [Concomitant]
  9. RENAGEL [Concomitant]
  10. BACTROBAN [Concomitant]
  11. MIRALAX [Concomitant]
  12. POTASSIUM CHLORIDE [Concomitant]
  13. NEPHROX [Concomitant]
  14. LANTUS [Concomitant]
  15. REGLAN [Concomitant]
  16. REGULAR INSULIN [Concomitant]
  17. HYTRIN [Concomitant]
  18. ZAROXOLYN [Concomitant]
  19. VITAMIN B6 [Concomitant]

REACTIONS (5)
  - BLOOD GLUCOSE DECREASED [None]
  - BLOOD GLUCOSE INCREASED [None]
  - COMA [None]
  - POST PROCEDURAL COMPLICATION [None]
  - THYROID OPERATION [None]
